FAERS Safety Report 11157587 (Version 1)
Quarter: 2015Q2

REPORT INFORMATION
  Report Type: Spontaneous
  Country: US (occurrence: None)
  Receive Date: 20150601
  Receipt Date: 20150601
  Transmission Date: 20150821
  Serious: Yes (Death)
  Sender: FDA-Public Use
  Company Number: 2015SA070635

PATIENT
  Age: 24 Year
  Sex: Male

DRUGS (5)
  1. VENLAFAXINE HYDROCHLORIDE (UNKNOWN) [Suspect]
     Active Substance: VENLAFAXINE HYDROCHLORIDE
     Indication: ANTIDEPRESSANT THERAPY
  2. ETHANOL [Suspect]
     Active Substance: ALCOHOL
  3. MITRAGYNA SPECIOSA (MITRAGYNINE) [Suspect]
     Active Substance: MITRAGYNINE
  4. DIPHENHYDRAMINE/UNKNOWN/UNKNOWN [Suspect]
     Active Substance: DIPHENHYDRAMINE
  5. MIRTAZAPINE (UNKNOWN) [Suspect]
     Active Substance: MIRTAZAPINE
     Indication: ANTIDEPRESSANT THERAPY

REACTIONS (8)
  - Pulmonary congestion [None]
  - Toxicity to various agents [None]
  - Pulmonary oedema [None]
  - Unresponsive to stimuli [None]
  - Vomiting [None]
  - Urinary retention [None]
  - Accidental death [None]
  - Blood ethanol increased [None]
